FAERS Safety Report 5473134-0 (Version None)
Quarter: 2007Q4

REPORT INFORMATION
  Report Type: 
  Country: None (occurrence: None)
  Receive Date: 20071001
  Receipt Date: 20070920
  Transmission Date: 20080405
  Serious: Yes (Hospitalization)
  Sender: FDA-Public Use
  Company Number: GB-AMGEN-US245209

PATIENT
  Sex: Male
  Weight: 108 kg

DRUGS (2)
  1. ENBREL [Suspect]
     Indication: PSORIATIC ARTHROPATHY
     Dosage: UNKNOWN
     Route: 058
     Dates: start: 20070827
  2. BENADRYL [Concomitant]
     Dates: start: 20070501

REACTIONS (1)
  - TYPE 2 DIABETES MELLITUS [None]
